FAERS Safety Report 13063525 (Version 1)
Quarter: 2016Q4

REPORT INFORMATION
  Report Type: Spontaneous
  Country: US (occurrence: US)
  Receive Date: 20161227
  Receipt Date: 20161227
  Transmission Date: 20170207
  Serious: Yes (Hospitalization)
  Sender: FDA-Public Use
  Company Number: PHEH2016US033730

PATIENT
  Age: 76 Year
  Sex: Female

DRUGS (2)
  1. LETROZOLE. [Suspect]
     Active Substance: LETROZOLE
     Indication: NEOPLASM MALIGNANT
     Dosage: 2.5 MG, QD
     Route: 065
     Dates: start: 201605
  2. PALBOCICLIB [Suspect]
     Active Substance: PALBOCICLIB
     Indication: NEOPLASM MALIGNANT
     Dosage: 125 MG, QD
     Route: 065
     Dates: start: 20160516

REACTIONS (3)
  - Ageusia [Unknown]
  - Stomatitis [Unknown]
  - Dry mouth [Not Recovered/Not Resolved]

NARRATIVE: CASE EVENT DATE: 20160610
